FAERS Safety Report 22090403 (Version 1)
Quarter: 2023Q1

REPORT INFORMATION
  Report Type: Report from Study
  Country: FR (occurrence: FR)
  Receive Date: 20230313
  Receipt Date: 20230313
  Transmission Date: 20230418
  Serious: Yes (Other)
  Sender: FDA-Public Use
  Company Number: FR-TAKEDA-2023TUS024888

PATIENT
  Sex: Male
  Weight: 105 kg

DRUGS (2)
  1. MARIBAVIR [Suspect]
     Active Substance: MARIBAVIR
     Indication: Cytomegalovirus infection
     Dosage: 400 MILLIGRAM, BID
     Route: 048
     Dates: start: 20230202, end: 20230216
  2. VALGANCICLOVIR [Suspect]
     Active Substance: VALGANCICLOVIR
     Indication: Cytomegalovirus infection
     Dosage: 180 MILLIGRAM, QD
     Route: 065
     Dates: start: 20230216

REACTIONS (3)
  - Cystitis viral [Unknown]
  - BK virus infection [Unknown]
  - Drug ineffective [Unknown]
